FAERS Safety Report 7764810 (Version 3)
Quarter: 2014Q1

REPORT INFORMATION
  Report Type: Spontaneous
  Country: US (occurrence: US)
  Receive Date: 20110119
  Receipt Date: 20140121
  Transmission Date: 20141002
  Serious: Yes (Hospitalization)
  Sender: FDA-Public Use
  Company Number: US-BAYER-2011-005194

PATIENT
  Age: 46 Year
  Sex: Female
  Weight: 83.45 kg

DRUGS (11)
  1. YASMIN [Suspect]
     Indication: CONTRACEPTION
     Dosage: UNK
     Route: 048
     Dates: start: 2007, end: 200807
  2. YASMIN [Suspect]
     Indication: PREMENSTRUAL SYNDROME
  3. YASMIN [Suspect]
     Indication: MENSTRUATION IRREGULAR
  4. OCELLA [Suspect]
     Indication: CONTRACEPTION
     Dosage: UNK
     Route: 048
     Dates: start: 200807, end: 20100810
  5. OCELLA [Suspect]
     Indication: PREMENSTRUAL SYNDROME
  6. OCELLA [Suspect]
     Indication: MENSTRUATION IRREGULAR
  7. ADVAIR DISKUS [Concomitant]
     Indication: ASTHMA
     Dosage: 100 UNK, UNK
  8. ALBUTEROL [Concomitant]
     Indication: ASTHMA
     Dosage: UNK
     Dates: start: 2006
  9. PREVACID [Concomitant]
     Indication: GASTROOESOPHAGEAL REFLUX DISEASE
     Dosage: UNK UNK, QD
  10. PROBIOTICS [Concomitant]
  11. BENTYL [Concomitant]

REACTIONS (4)
  - Cholecystitis [None]
  - Abdominal pain upper [None]
  - Abdominal adhesions [None]
  - Abdominal pain [None]
